FAERS Safety Report 22817246 (Version 2)
Quarter: 2025Q1

REPORT INFORMATION
  Report Type: Spontaneous
  Country: BR (occurrence: BR)
  Receive Date: 20230812
  Receipt Date: 20250328
  Transmission Date: 20250408
  Serious: No
  Sender: CELLTRION
  Company Number: BR-CELLTRION INC.-2023BR015949

PATIENT

DRUGS (3)
  1. INFLIXIMAB [Suspect]
     Active Substance: INFLIXIMAB
     Indication: Psoriatic arthropathy
     Route: 042
     Dates: start: 20220926
  2. METHOTREXATE SODIUM [Concomitant]
     Active Substance: METHOTREXATE SODIUM
     Indication: Psoriatic arthropathy
     Dosage: 10 PILLS A WEEK
     Route: 048
     Dates: start: 2012
  3. ENALAPRIL [Concomitant]
     Active Substance: ENALAPRIL
     Indication: Hypertension
     Route: 048

REACTIONS (1)
  - Drug ineffective [Unknown]
